FAERS Safety Report 8338489-8 (Version None)
Quarter: 2012Q1

REPORT INFORMATION
  Report Type: 
  Country: None (occurrence: None)
  Receive Date: 20120329
  Receipt Date: 20081209
  Transmission Date: 20120608
  Serious: Yes (Other)
  Sender: FDA-Public Use
  Company Number: PHEH2008US10055

PATIENT
  Age: 82 Year
  Sex: Female

DRUGS (2)
  1. EXELON [Suspect]
     Indication: DEMENTIA ALZHEIMER'S TYPE
     Dosage: 9.5 MG/24HR, TRANSDERMAL
     Route: 062
     Dates: start: 20080916, end: 20081104
  2. MEMANTINE HCL [Concomitant]

REACTIONS (3)
  - NEURODERMATITIS [None]
  - PRURITUS [None]
  - RASH [None]
